FAERS Safety Report 5623831-9 (Version None)
Quarter: 2008Q1

REPORT INFORMATION
  Report Type: 
  Country: None (occurrence: None)
  Receive Date: 20080207
  Receipt Date: 20080130
  Transmission Date: 20080703
  Serious: Yes (Hospitalization)
  Sender: FDA-Public Use
  Company Number: FABR-1000041

PATIENT
  Age: 54 Year
  Sex: Female

DRUGS (1)
  1. FABRAZYME [Suspect]
     Indication: FABRY'S DISEASE
     Dosage: 1 MG/KG,Q2W; INTRAVENOUS
     Route: 042
     Dates: start: 20070713

REACTIONS (1)
  - CORONARY ARTERY OCCLUSION [None]
